FAERS Safety Report 7766830-3 (Version None)
Quarter: 2011Q3

REPORT INFORMATION
  Report Type: 
  Country: None (occurrence: None)
  Receive Date: 20110922
  Receipt Date: 20101220
  Transmission Date: 20111222
  Serious: No
  Sender: FDA-Public Use
  Company Number: US-ASTRAZENECA-2010SE60095

PATIENT
  Age: 49 Year
  Sex: Female

DRUGS (6)
  1. KEPPRA [Concomitant]
  2. SEROQUEL [Suspect]
     Route: 048
  3. DEPAKOTE [Concomitant]
  4. KLONOPIN [Concomitant]
  5. SEROQUEL [Suspect]
     Indication: BIPOLAR DISORDER
     Route: 048
     Dates: start: 20070101
  6. ZOLOFT [Concomitant]

REACTIONS (3)
  - HYPOTHYROIDISM [None]
  - INFLUENZA [None]
  - HYPERTENSION [None]
